FAERS Safety Report 22003771 (Version 6)
Quarter: 2023Q2

REPORT INFORMATION
  Report Type: Report from Study
  Country: US (occurrence: US)
  Receive Date: 20230217
  Receipt Date: 20230623
  Transmission Date: 20230722
  Serious: Yes (Hospitalization)
  Sender: FDA-Public Use
  Company Number: US-002147023-NVSC2023US035416

PATIENT
  Sex: Male

DRUGS (1)
  1. ENTRESTO [Suspect]
     Active Substance: SACUBITRIL\VALSARTAN
     Indication: Product used for unknown indication
     Dosage: 1 DOSAGE FORM, BID
     Route: 048

REACTIONS (6)
  - Tremor [Recovering/Resolving]
  - Dizziness [Recovering/Resolving]
  - Back disorder [Not Recovered/Not Resolved]
  - Concomitant disease aggravated [Unknown]
  - Memory impairment [Unknown]
  - Cough [Unknown]
